FAERS Safety Report 16796580 (Version 1)
Quarter: 2019Q3

REPORT INFORMATION
  Report Type: Spontaneous
  Country: JP (occurrence: JP)
  Receive Date: 20190911
  Receipt Date: 20190911
  Transmission Date: 20191005
  Serious: Yes (Other)
  Sender: FDA-Public Use
  Company Number: JP-ALLERGAN-1936701US

PATIENT
  Sex: Female

DRUGS (1)
  1. ASENAPINE MALEATE - BP [Suspect]
     Active Substance: ASENAPINE MALEATE
     Indication: SCHIZOPHRENIA
     Route: 060

REACTIONS (7)
  - Sedation complication [Unknown]
  - Menstruation irregular [Unknown]
  - Schizophrenia [Unknown]
  - Extrapyramidal disorder [Unknown]
  - Paraesthesia oral [Unknown]
  - Nausea [Unknown]
  - Insomnia [Unknown]
